FAERS Safety Report 17184672 (Version 1)
Quarter: 2019Q4

REPORT INFORMATION
  Report Type: Report from Study
  Country: US (occurrence: US)
  Receive Date: 20191220
  Receipt Date: 20191220
  Transmission Date: 20200122
  Serious: Yes (Hospitalization, Other)
  Sender: FDA-Public Use
  Company Number: US-BAYER-2019-228786

PATIENT
  Age: 47 Year
  Sex: Female

DRUGS (9)
  1. NEXAVAR [Suspect]
     Active Substance: SORAFENIB
     Indication: HEPATOCELLULAR CARCINOMA
     Dosage: 200 MG, BID
     Route: 048
     Dates: start: 20191119, end: 20191128
  2. PROAIR HFA [Concomitant]
     Active Substance: ALBUTEROL SULFATE
     Dosage: UNK
  3. OMEPRAZOLE. [Concomitant]
     Active Substance: OMEPRAZOLE
     Dosage: UNK
  4. LORAZEPAM. [Concomitant]
     Active Substance: LORAZEPAM
     Dosage: UNK
  5. VITAMINS NOS [Concomitant]
     Active Substance: VITAMINS
     Dosage: UNK
  6. PROMETHAZINE HCL [Concomitant]
     Active Substance: PROMETHAZINE HYDROCHLORIDE
     Dosage: UNK
  7. AMITIZA [Concomitant]
     Active Substance: LUBIPROSTONE
     Dosage: UNK
  8. ASPERCREME [LIDOCAINE] [Concomitant]
     Indication: MUSCLE STRAIN
     Dosage: UNK
  9. SENNOSIDE A+B [Concomitant]
     Active Substance: SENNOSIDES A AND B
     Dosage: UNK

REACTIONS (13)
  - Peripheral swelling [Not Recovered/Not Resolved]
  - Kidney infection [Recovered/Resolved]
  - Pain [Recovered/Resolved]
  - Peripheral venous disease [None]
  - Influenza [Recovered/Resolved]
  - Dehydration [Recovered/Resolved]
  - Pain in extremity [Not Recovered/Not Resolved]
  - Limb discomfort [None]
  - Hypertension [None]
  - Product dose omission [Unknown]
  - Pain [Not Recovered/Not Resolved]
  - Muscle strain [Not Recovered/Not Resolved]
  - Off label use [None]

NARRATIVE: CASE EVENT DATE: 20191119
